FAERS Safety Report 13127888 (Version 2)
Quarter: 2017Q1

REPORT INFORMATION
  Report Type: Spontaneous
  Country: US (occurrence: US)
  Receive Date: 20170118
  Receipt Date: 20170224
  Transmission Date: 20170428
  Serious: No
  Sender: FDA-Public Use
  Company Number: US-009507513-1701USA003125

PATIENT
  Sex: Female

DRUGS (1)
  1. ASMANEX [Suspect]
     Active Substance: MOMETASONE FUROATE
     Indication: ASTHMA
     Dosage: 220 MICROGRAM (ONE INHALATION), QD; ROUTE: ORAL INHALATION
     Route: 055
     Dates: start: 201611

REACTIONS (3)
  - Cerebrovascular disorder [Unknown]
  - Product quality issue [Unknown]
  - Drug dose omission [Unknown]
